FAERS Safety Report 11159189 (Version 1)
Quarter: 2015Q2

REPORT INFORMATION
  Report Type: Spontaneous
  Country: FR (occurrence: FR)
  Receive Date: 20150603
  Receipt Date: 20150603
  Transmission Date: 20150821
  Serious: Yes (Hospitalization)
  Sender: FDA-Public Use
  Company Number: FR-TEVA-565859ISR

PATIENT
  Age: 64 Year
  Sex: Male

DRUGS (12)
  1. OROCAL VITAMINE D3 [Suspect]
     Active Substance: CALCIUM CARBONATE\CHOLECALCIFEROL
     Dosage: LONG-STANDING TREATMENT
     Route: 048
     Dates: end: 20141018
  2. TEGELINE [Suspect]
     Active Substance: HUMAN IMMUNOGLOBULIN G
     Route: 041
     Dates: start: 20141013, end: 20141016
  3. CORTANCYL [Suspect]
     Active Substance: PREDNISONE
     Dosage: LONG-STANDING TREATMENT
  4. LAMALINE [Suspect]
     Active Substance: ACETAMINOPHEN\CAFFEINE\OPIUM
     Dosage: LONG-STANDING TREATMENT
     Route: 048
     Dates: end: 20141018
  5. FENOFIBRATE. [Suspect]
     Active Substance: FENOFIBRATE
     Dosage: LONG-STANDING TREATMENT
     Route: 048
     Dates: end: 20141018
  6. GABAPENTINE [Suspect]
     Active Substance: GABAPENTIN
     Dosage: 1200 MILLIGRAM DAILY; LONG-STANDING TREATMENT
     Route: 048
     Dates: end: 20141018
  7. DIFFU-K [Concomitant]
     Active Substance: POTASSIUM CHLORIDE
     Route: 048
     Dates: start: 20141016
  8. INEXIUM [Concomitant]
     Active Substance: ESOMEPRAZOLE
     Dosage: LONG-STANDING TREATMENT
  9. TEGELINE [Suspect]
     Active Substance: HUMAN IMMUNOGLOBULIN G
     Route: 041
     Dates: start: 20141013, end: 20141016
  10. PLAQUENIL [Suspect]
     Active Substance: HYDROXYCHLOROQUINE SULFATE
     Dosage: LONG-STANDING TREATMENT
     Route: 048
     Dates: end: 20141018
  11. OMEXEL LP 0.4 MG [Suspect]
     Active Substance: TAMSULOSIN HYDROCHLORIDE
     Dosage: LONG-STANDING TREATMENT, PROLONGED RELEASE
     Route: 048
     Dates: end: 20141018
  12. TEGELINE [Suspect]
     Active Substance: HUMAN IMMUNOGLOBULIN G
     Route: 041
     Dates: start: 20141013, end: 20141016

REACTIONS (2)
  - Acute kidney injury [Recovered/Resolved]
  - Hyperkalaemia [Recovered/Resolved]

NARRATIVE: CASE EVENT DATE: 20141018
